FAERS Safety Report 9320634 (Version 2)
Quarter: 2015Q1

REPORT INFORMATION
  Report Type: Report from Study
  Country: US (occurrence: US)
  Receive Date: 20130531
  Receipt Date: 20150311
  Transmission Date: 20150721
  Serious: Yes (Hospitalization, Other)
  Sender: FDA-Public Use
  Company Number: US-ROCHE-1221618

PATIENT
  Sex: Male
  Weight: 99.88 kg

DRUGS (7)
  1. EPIVIR [Concomitant]
     Active Substance: LAMIVUDINE
     Indication: HIV INFECTION
  2. INVIRASE [Suspect]
     Active Substance: SAQUINAVIR MESYLATE
     Route: 065
     Dates: start: 1995
  3. INVIRASE [Suspect]
     Active Substance: SAQUINAVIR MESYLATE
     Indication: HIV INFECTION
     Route: 048
     Dates: start: 20070327, end: 20070510
  4. INVIRASE [Suspect]
     Active Substance: SAQUINAVIR MESYLATE
     Route: 048
     Dates: start: 20070511
  5. SYNTHROID [Concomitant]
     Active Substance: LEVOTHYROXINE SODIUM
     Indication: HYPOTHYROIDISM
     Route: 048
     Dates: start: 20010829
  6. NORVIR [Concomitant]
     Active Substance: RITONAVIR
     Indication: HIV INFECTION
  7. TRICOR (UNITED STATES) [Concomitant]
     Indication: LIPIDS INCREASED
     Route: 048
     Dates: start: 20010121

REACTIONS (7)
  - Inflammation [Unknown]
  - Uveitis [Unknown]
  - Headache [Unknown]
  - Swelling [Unknown]
  - Blindness [Unknown]
  - Retinal detachment [Unknown]
  - Visual impairment [Unknown]
